FAERS Safety Report 8300329-0 (Version None)
Quarter: 2012Q2

REPORT INFORMATION
  Report Type: 
  Country: None (occurrence: None)
  Receive Date: 20120420
  Receipt Date: 20120412
  Transmission Date: 20120825
  Serious: Yes (Other)
  Sender: FDA-Public Use
  Company Number: US-BAYER-2012-037418

PATIENT
  Sex: Female
  Weight: 82.993 kg

DRUGS (3)
  1. YAZ [Suspect]
     Route: 048
  2. DROSPIRENONE AND ETHINYL ESTRADIOL [Suspect]
     Route: 048
  3. YASMIN [Suspect]
     Route: 048

REACTIONS (1)
  - PULMONARY EMBOLISM [None]
